FAERS Safety Report 14374944 (Version 1)
Quarter: 2018Q1

REPORT INFORMATION
  Report Type: Spontaneous
  Country: US (occurrence: US)
  Receive Date: 20180111
  Receipt Date: 20180111
  Transmission Date: 20180509
  Serious: No
  Sender: FDA-Public Use
  Company Number: US-PFIZER INC-2018011240

PATIENT
  Age: 60 Year
  Sex: Female

DRUGS (4)
  1. GABAPENTIN. [Suspect]
     Active Substance: GABAPENTIN
     Indication: NEURALGIA
     Dosage: UNK
  2. GABAPENTIN. [Suspect]
     Active Substance: GABAPENTIN
     Indication: INTERVERTEBRAL DISC PROTRUSION
  3. GABAPENTIN. [Suspect]
     Active Substance: GABAPENTIN
     Indication: SPONDYLOLISTHESIS
  4. LORATADINE. [Concomitant]
     Active Substance: LORATADINE
     Indication: HYPERSENSITIVITY
     Dosage: 10 MG, 1X/DAY (USES IT PRIMARILY WHEN THE SEASON CHANGE)
     Route: 048
     Dates: start: 2008

REACTIONS (5)
  - Rash [Unknown]
  - Malaise [Unknown]
  - Hypersensitivity [Unknown]
  - Drug ineffective for unapproved indication [Unknown]
  - Pruritus [Unknown]

NARRATIVE: CASE EVENT DATE: 2010
